FAERS Safety Report 4435024-1 (Version None)
Quarter: 2004Q3

REPORT INFORMATION
  Report Type: 
  Country: None (occurrence: None)
  Receive Date: 20040826
  Receipt Date: 20040826
  Transmission Date: 20050211
  Serious: No
  Sender: FDA-Public Use
  Company Number: None

PATIENT
  Sex: Female

DRUGS (1)
  1. NASACORT AQ [Suspect]
     Indication: RHINITIS ALLERGIC
     Dosage: 1 SPRAY EACH NOSTRIL IN AM
     Route: 045

REACTIONS (2)
  - DRUG INEFFECTIVE [None]
  - EPISTAXIS [None]
